FAERS Safety Report 8329707-0 (Version None)
Quarter: 2012Q2

REPORT INFORMATION
  Report Type: 
  Country: None (occurrence: None)
  Receive Date: 20120502
  Receipt Date: 20120409
  Transmission Date: 20120825
  Serious: Yes (Hospitalization, Other)
  Sender: FDA-Public Use
  Company Number: TR-GLAXOSMITHKLINE-B0795871A

PATIENT
  Age: 50 Year
  Sex: Male

DRUGS (1)
  1. RANITIDINE [Suspect]
     Indication: ABDOMINAL PAIN UPPER
     Route: 065

REACTIONS (15)
  - CYANOSIS [None]
  - OXYGEN SATURATION DECREASED [None]
  - HYPERAESTHESIA [None]
  - VERTIGO [None]
  - ANAPHYLACTIC REACTION [None]
  - BLOOD PRESSURE DECREASED [None]
  - SINUS TACHYCARDIA [None]
  - CONFUSIONAL STATE [None]
  - BURNING SENSATION [None]
  - COLD SWEAT [None]
  - ACUTE CORONARY SYNDROME [None]
  - DIZZINESS [None]
  - CONDITION AGGRAVATED [None]
  - BRONCHOSPASM [None]
  - ELECTROCARDIOGRAM ST SEGMENT ELEVATION [None]
